FAERS Safety Report 7271021-9 (Version None)
Quarter: 2011Q1

REPORT INFORMATION
  Report Type: 
  Country: None (occurrence: None)
  Receive Date: 20110202
  Receipt Date: 20110120
  Transmission Date: 20110831
  Serious: Yes (Hospitalization, Other)
  Sender: FDA-Public Use
  Company Number: CA-ELI_LILLY_AND_COMPANY-CA201011001944

PATIENT
  Age: 84 Year
  Sex: Female

DRUGS (9)
  1. EURO-D [Concomitant]
  2. FORTEO [Suspect]
     Indication: OSTEOPOROSIS
     Dosage: 20 UG, DAILY (1/D)
     Route: 058
     Dates: start: 20091014
  3. APO-CAL [Concomitant]
  4. PAXIL [Concomitant]
  5. ASAPHEN [Concomitant]
  6. LIPITOR [Concomitant]
  7. PANTOLOC                           /01263202/ [Concomitant]
  8. ALTACE [Concomitant]
  9. TYLENOL (CAPLET) [Concomitant]

REACTIONS (4)
  - FALL [None]
  - PELVIC FRACTURE [None]
  - CONTUSION [None]
  - ARTHRALGIA [None]
